FAERS Safety Report 12204582 (Version 2)
Quarter: 2016Q1

REPORT INFORMATION
  Report Type: Spontaneous
  Country: US (occurrence: US)
  Receive Date: 20160323
  Receipt Date: 20160328
  Transmission Date: 20160526
  Serious: Yes (Hospitalization)
  Sender: FDA-Public Use
  Company Number: US-JNJFOC-20160317515

PATIENT
  Age: 88 Year
  Sex: Female

DRUGS (1)
  1. XARELTO [Suspect]
     Active Substance: RIVAROXABAN
     Indication: PULMONARY EMBOLISM
     Route: 048
     Dates: start: 201506, end: 20160308

REACTIONS (4)
  - Hospitalisation [Unknown]
  - Fall [Unknown]
  - Subdural haemorrhage [Unknown]
  - Eye contusion [Unknown]

NARRATIVE: CASE EVENT DATE: 201603
